FAERS Safety Report 20336758 (Version 1)
Quarter: 2022Q1

REPORT INFORMATION
  Report Type: Spontaneous
  Country: None (occurrence: GB)
  Receive Date: 20220114
  Receipt Date: 20220114
  Transmission Date: 20220423
  Serious: Yes (Death, Life-Threatening, Hospitalization, Disabling, Other)
  Sender: FDA-Public Use
  Company Number: GB-B.Braun Medical Inc.-2123939

PATIENT
  Age: 76 Year
  Sex: Male
  Weight: 69 kg

DRUGS (12)
  1. CEFUROXIME SODIUM [Suspect]
     Active Substance: CEFUROXIME SODIUM
  2. ALLOPURINOL [Concomitant]
     Active Substance: ALLOPURINOL
  3. BETAHISTINE [Concomitant]
     Active Substance: BETAHISTINE
  4. CHOLECALCIFEROL [Concomitant]
     Active Substance: CHOLECALCIFEROL
  5. DEXTROSE [Concomitant]
     Active Substance: DEXTROSE
  6. EPLERENONE [Concomitant]
     Active Substance: EPLERENONE
  7. FUROSEMIDE [Concomitant]
     Active Substance: FUROSEMIDE
  8. GLICLAZIDE [Concomitant]
     Active Substance: GLICLAZIDE
  9. GLUCAGON [Concomitant]
     Active Substance: GLUCAGON
  10. PREDNISOLONE [Concomitant]
     Active Substance: PREDNISOLONE
  11. ALBUTEROL [Concomitant]
     Active Substance: ALBUTEROL
  12. SENNA [Concomitant]
     Active Substance: SENNA LEAF\SENNOSIDES\SENNOSIDES A AND B

REACTIONS (6)
  - Oesophageal carcinoma [Fatal]
  - Myocardial ischaemia [Fatal]
  - Drug interaction [Fatal]
  - Acute kidney injury [Fatal]
  - Cardiac failure congestive [Fatal]
  - Pneumonia [Fatal]
